FAERS Safety Report 8475827-X (Version None)
Quarter: 2012Q2

REPORT INFORMATION
  Report Type: 
  Country: None (occurrence: None)
  Receive Date: 20120628
  Receipt Date: 20120621
  Transmission Date: 20120825
  Serious: Yes (Hospitalization)
  Sender: FDA-Public Use
  Company Number: US-GENZYME-CAMP-1002279

PATIENT
  Sex: Female
  Weight: 60.726 kg

DRUGS (11)
  1. METHYLPREDNISOLONE [Concomitant]
     Indication: PRODUCT USED FOR UNKNOWN INDICATION
     Dosage: 1 G, QD
     Route: 042
     Dates: start: 20090327, end: 20090327
  2. ALEMTUZUMAB [Suspect]
     Indication: MULTIPLE SCLEROSIS
     Dosage: 24 MG, QD
     Route: 042
     Dates: start: 20090327, end: 20090327
  3. KEFLEX [Concomitant]
     Indication: URINARY TRACT INFECTION
     Dosage: 500 MG, BID
     Route: 048
     Dates: start: 20120514
  4. METHYLPREDNISOLONE [Concomitant]
     Dosage: 1 G, QD
     Route: 042
     Dates: start: 20090330, end: 20090401
  5. METHYLPREDNISOLONE [Concomitant]
     Dosage: 1 G, QD
     Route: 042
     Dates: start: 20100331, end: 20100402
  6. ALEMTUZUMAB [Suspect]
     Dosage: 24 MG, QD
     Route: 042
     Dates: start: 20090330, end: 20090401
  7. BACTRIM [Concomitant]
     Indication: ADVERSE EVENT
     Dosage: 400 MG, QD
     Route: 048
     Dates: start: 20120529
  8. METHYLPREDNISOLONE [Concomitant]
     Dosage: 1 G, QD
     Route: 042
     Dates: start: 20090403, end: 20090403
  9. ALEMTUZUMAB [Suspect]
     Dosage: 24 MG, QD
     Route: 042
     Dates: start: 20090403, end: 20090403
  10. ZOFRAN [Concomitant]
     Indication: ADVERSE EVENT
     Dosage: 8 MG, PRN
     Route: 048
     Dates: start: 20120606
  11. ALEMTUZUMAB [Suspect]
     Dosage: 24 MG, QD
     Dates: start: 20100331, end: 20100402

REACTIONS (1)
  - URINARY TRACT INFECTION [None]
